FAERS Safety Report 10956771 (Version 1)
Quarter: 2015Q1

REPORT INFORMATION
  Report Type: Spontaneous
  Country: US (occurrence: US)
  Receive Date: 20150326
  Receipt Date: 20150326
  Transmission Date: 20150721
  Serious: No
  Sender: FDA-Public Use
  Company Number: US-MYLANLABS-2014M1001736

PATIENT
  Age: 36 Year
  Sex: Male
  Weight: 108.84 kg

DRUGS (12)
  1. EMSAM [Suspect]
     Active Substance: SELEGILINE
     Indication: DEPRESSION
     Dosage: 6 MG, QD
     Route: 062
     Dates: start: 201403, end: 2014
  2. EMSAM [Interacting]
     Active Substance: SELEGILINE
     Indication: SOCIAL PHOBIA
  3. EMSAM [Interacting]
     Active Substance: SELEGILINE
     Indication: DEPRESSION
  4. KLONOPIN [Interacting]
     Active Substance: CLONAZEPAM
     Indication: SOCIAL PHOBIA
  5. EMSAM [Interacting]
     Active Substance: SELEGILINE
     Dosage: 12 MG, QD
     Route: 062
     Dates: start: 201408
  6. EMSAM [Interacting]
     Active Substance: SELEGILINE
     Dosage: 9 MG, QD
     Route: 062
     Dates: start: 2014, end: 2014
  7. EMSAM [Interacting]
     Active Substance: SELEGILINE
     Indication: DEPRESSION
  8. EMSAM [Interacting]
     Active Substance: SELEGILINE
     Indication: SOCIAL PHOBIA
  9. KLONOPIN [Interacting]
     Active Substance: CLONAZEPAM
     Dosage: UNK, PRN
     Route: 048
     Dates: end: 2014
  10. LOSARTAN [Concomitant]
     Active Substance: LOSARTAN
     Indication: BLOOD PRESSURE
     Dosage: UNK
     Route: 048
  11. EMSAM [Interacting]
     Active Substance: SELEGILINE
     Indication: SOCIAL PHOBIA
  12. KLONOPIN [Interacting]
     Active Substance: CLONAZEPAM
     Indication: SLEEP DISORDER

REACTIONS (7)
  - Social phobia [Not Recovered/Not Resolved]
  - Drug interaction [Recovered/Resolved]
  - Insomnia [Not Recovered/Not Resolved]
  - Somnolence [Recovered/Resolved]
  - Inappropriate schedule of drug administration [Not Recovered/Not Resolved]
  - Drug ineffective for unapproved indication [Not Recovered/Not Resolved]
  - Feeling abnormal [Recovered/Resolved]

NARRATIVE: CASE EVENT DATE: 201403
